FAERS Safety Report 12713379 (Version 2)
Quarter: 2016Q3

REPORT INFORMATION
  Report Type: Spontaneous
  Country: GH (occurrence: GH)
  Receive Date: 20160903
  Receipt Date: 20160908
  Transmission Date: 20161109
  Serious: Yes (Death)
  Sender: FDA-Public Use
  Company Number: GH-ASTRAZENECA-2016SE93682

PATIENT
  Age: 24 Year
  Sex: Female

DRUGS (2)
  1. MERONEM [Suspect]
     Active Substance: MEROPENEM
     Indication: SEPSIS
     Dosage: 1.0G UNKNOWN
     Route: 042
  2. MERONEM [Suspect]
     Active Substance: MEROPENEM
     Indication: SEPSIS
     Dosage: 2.0G UNKNOWN
     Route: 042

REACTIONS (2)
  - Pathogen resistance [Fatal]
  - Pyrexia [Fatal]
